FAERS Safety Report 5912871-8 (Version None)
Quarter: 2008Q4

REPORT INFORMATION
  Report Type: 
  Country: None (occurrence: None)
  Receive Date: 20081008
  Receipt Date: 20080930
  Transmission Date: 20090506
  Serious: Yes (Hospitalization, Disabling)
  Sender: FDA-Public Use
  Company Number: JP-MERCK-0808USA04258

PATIENT
  Age: 81 Year
  Sex: Female
  Weight: 49 kg

DRUGS (2)
  1. FOSAMAX [Suspect]
     Indication: OSTEOPOROSIS
     Route: 048
     Dates: start: 20040401
  2. FOSAMAX [Suspect]
     Route: 048
     Dates: end: 20070921

REACTIONS (2)
  - OSTEONECROSIS [None]
  - PSEUDOMONAS INFECTION [None]
